FAERS Safety Report 7659866-4 (Version None)
Quarter: 2011Q3

REPORT INFORMATION
  Report Type: 
  Country: None (occurrence: None)
  Receive Date: 20110805
  Receipt Date: 20110711
  Transmission Date: 20111222
  Serious: Yes (Death)
  Sender: FDA-Public Use
  Company Number: US-ABBOTT-11P-163-0730577-00

PATIENT
  Sex: Female

DRUGS (9)
  1. DEPAKOTE ER [Suspect]
  2. AMBIEN [Suspect]
     Indication: OVERDOSE
     Dosage: 58
  3. TYLENOL-500 [Suspect]
     Indication: OVERDOSE
     Dosage: 1 BOTTLE
  4. LEXAPRO [Concomitant]
     Indication: PRODUCT USED FOR UNKNOWN INDICATION
     Dosage: 20, QAM
     Dates: start: 20091020, end: 20110521
  5. AMBIEN [Suspect]
     Dosage: 10, QHSYM
     Dates: start: 20091105, end: 20110521
  6. SONATA [Suspect]
     Indication: OVERDOSE
     Dosage: 28
  7. DEPAKOTE ER [Suspect]
     Indication: BIPOLAR DISORDER
     Dates: start: 20081202, end: 20110522
  8. SONATA [Suspect]
     Dosage: 10- MID NOCTURNAL AWAKE AS NEEDED
     Dates: start: 20090817, end: 20110521
  9. LAMICTAL [Concomitant]
     Indication: PRODUCT USED FOR UNKNOWN INDICATION
     Dosage: 200, QHS
     Dates: start: 20081202, end: 20110521

REACTIONS (1)
  - OVERDOSE [None]
